FAERS Safety Report 18317379 (Version 1)
Quarter: 2020Q3

REPORT INFORMATION
  Report Type: Spontaneous
  Country: CA (occurrence: CA)
  Receive Date: 20200928
  Receipt Date: 20200928
  Transmission Date: 20201103
  Serious: Yes (Other)
  Sender: FDA-Public Use
  Company Number: CA-ACCORD-202807

PATIENT
  Age: 32 Year
  Sex: Male

DRUGS (6)
  1. METHOTREXATE. [Suspect]
     Active Substance: METHOTREXATE
     Indication: PRODUCT USED FOR UNKNOWN INDICATION
     Dosage: 1 EVERY 1 WEEKS
     Route: 058
  2. HUMIRA [Concomitant]
     Active Substance: ADALIMUMAB
     Dosage: SOLUTION SUBCUTANEOUS
  3. CALCIUM CARBONATE/COLECALCIFEROL [Concomitant]
     Active Substance: CALCIUM CARBONATE\CHOLECALCIFEROL
     Dosage: EVERY 1 DAYS
     Route: 048
  4. CIMZIA [Concomitant]
     Active Substance: CERTOLIZUMAB PEGOL
  5. FOLIC ACID. [Concomitant]
     Active Substance: FOLIC ACID
  6. OMEGA?3 TRIGLYCERIDES [Concomitant]
     Active Substance: OMEGA-3 FATTY ACIDS

REACTIONS (8)
  - Condition aggravated [Unknown]
  - Asthenia [Unknown]
  - Cutaneous T-cell lymphoma [Unknown]
  - Peripheral swelling [Unknown]
  - Joint swelling [Unknown]
  - Product use issue [Unknown]
  - Skin lesion [Unknown]
  - Arthralgia [Unknown]
